FAERS Safety Report 6781124-0 (Version None)
Quarter: 2010Q2

REPORT INFORMATION
  Report Type: 
  Country: None (occurrence: None)
  Receive Date: 20100520
  Receipt Date: 20090604
  Transmission Date: 20101027
  Serious: Yes (Other)
  Sender: FDA-Public Use
  Company Number: 2008054026

PATIENT
  Age: 57 Year
  Sex: Female
  Weight: 81 kg

DRUGS (9)
  1. PROVERA [Suspect]
     Indication: HORMONE REPLACEMENT THERAPY
     Dosage: ORAL
     Route: 048
     Dates: start: 19890101, end: 19990101
  2. PROVERA [Suspect]
     Indication: MENOPAUSE
     Dosage: ORAL
     Route: 048
     Dates: start: 19890101, end: 19990101
  3. MEDROXYPROGESTERONE ACETATE [Suspect]
     Indication: HORMONE REPLACEMENT THERAPY
     Dosage: ORAL
     Route: 048
     Dates: start: 19890101, end: 19990101
  4. MEDROXYPROGESTERONE ACETATE [Suspect]
     Indication: MENOPAUSE
     Dosage: ORAL
     Route: 048
     Dates: start: 19890101, end: 19990101
  5. PREMARIN [Suspect]
     Indication: HORMONE REPLACEMENT THERAPY
     Dates: start: 19890101, end: 19990101
  6. PREMARIN [Suspect]
     Indication: MENOPAUSE
     Dates: start: 19890101, end: 19990101
  7. PREMPRO [Suspect]
     Indication: HORMONE REPLACEMENT THERAPY
     Dates: start: 19890101, end: 19990101
  8. PREMPRO [Suspect]
     Indication: MENOPAUSE
     Dates: start: 19890101, end: 19990101
  9. BENAZEPRIL HYDROCHLORIDE [Concomitant]

REACTIONS (1)
  - BREAST CANCER FEMALE [None]
